FAERS Safety Report 11406885 (Version 1)
Quarter: 2015Q3

REPORT INFORMATION
  Report Type: Spontaneous
  Country: US (occurrence: US)
  Receive Date: 20150821
  Receipt Date: 20150821
  Transmission Date: 20151125
  Serious: No
  Sender: FDA-Public Use
  Company Number: US-NOVOPROD-452087

PATIENT
  Age: 44 Year
  Sex: Female

DRUGS (1)
  1. VICTOZA [Suspect]
     Active Substance: LIRAGLUTIDE
     Indication: GLUCOSE TOLERANCE IMPAIRED
     Dosage: 1.8 MG, QD
     Route: 058

REACTIONS (14)
  - Feeding disorder [Unknown]
  - Parosmia [Unknown]
  - Anxiety [Unknown]
  - Chills [Unknown]
  - Feeling of body temperature change [Unknown]
  - Dizziness [Unknown]
  - Injection site haemorrhage [Unknown]
  - Nausea [Unknown]
  - Vomiting [Unknown]
  - Condition aggravated [Unknown]
  - Injection site bruising [Unknown]
  - Cold sweat [Unknown]
  - Off label use [Unknown]
  - Retching [Unknown]

NARRATIVE: CASE EVENT DATE: 20150530
